FAERS Safety Report 4903856-9 (Version None)
Quarter: 2006Q1

REPORT INFORMATION
  Report Type: 
  Country: None (occurrence: None)
  Receive Date: 20060208
  Receipt Date: 20050708
  Transmission Date: 20060701
  Serious: No
  Sender: FDA-Public Use
  Company Number: US-GLAXOSMITHKLINE-A0566357A

PATIENT
  Age: 36 Year
  Sex: Female

DRUGS (1)
  1. PAXIL [Suspect]
     Indication: MAJOR DEPRESSION
     Route: 048

REACTIONS (1)
  - DRUG WITHDRAWAL SYNDROME [None]
